FAERS Safety Report 10128118 (Version 3)
Quarter: 2014Q2

REPORT INFORMATION
  Report Type: Spontaneous
  Country: JP (occurrence: JP)
  Receive Date: 20140428
  Receipt Date: 20140513
  Transmission Date: 20141212
  Serious: Yes (Hospitalization, Other)
  Sender: FDA-Public Use
  Company Number: JP-UCBSA-118428

PATIENT
  Age: 26 Year
  Sex: Female

DRUGS (3)
  1. E KEPPRA [Suspect]
     Indication: EPILEPSY
     Route: 048
     Dates: start: 20140221, end: 20140308
  2. TEGRETOL [Suspect]
     Dosage: 500 MG DAILY
     Route: 048
     Dates: start: 20131205
  3. PHENOBAL [Concomitant]
     Dosage: DAILY DOSE: 100 MG
     Route: 048
     Dates: start: 20061221

REACTIONS (1)
  - Rhabdomyolysis [Recovered/Resolved]
